FAERS Safety Report 11419553 (Version 1)
Quarter: 2015Q3

REPORT INFORMATION
  Report Type: Spontaneous
  Country: US (occurrence: None)
  Receive Date: 20150825
  Receipt Date: 20150825
  Transmission Date: 20151125
  Serious: No
  Sender: FDA-Public Use
  Company Number: None

PATIENT
  Age: 60 Year
  Sex: Female
  Weight: 78.02 kg

DRUGS (4)
  1. OMEPRAZOLE. [Concomitant]
     Active Substance: OMEPRAZOLE
  2. ZICAM COLD REMEDY [Suspect]
     Active Substance: ZINC ACETATE\ZINC GLUCONATE
     Indication: NASOPHARYNGITIS
     Dosage: 1 RAPIDMELT EVERY 4-6 HOURS BY MOUTH
     Route: 048
     Dates: start: 20150610, end: 20150614
  3. LOSARTAN. [Concomitant]
     Active Substance: LOSARTAN
  4. GLUCOSAMINE CHONDROITIN [Concomitant]
     Active Substance: CHONDROITIN SULFATE (BOVINE)\GLUCOSAMINE HYDROCHLORIDE

REACTIONS (5)
  - Depression [None]
  - Emotional distress [None]
  - Anosmia [None]
  - Ageusia [None]
  - Activities of daily living impaired [None]

NARRATIVE: CASE EVENT DATE: 20150618
